FAERS Safety Report 4548701-9 (Version None)
Quarter: 2005Q1

REPORT INFORMATION
  Report Type: 
  Country: None (occurrence: None)
  Receive Date: 20050107
  Receipt Date: 20050107
  Transmission Date: 20050727
  Serious: Yes (Hospitalization)
  Sender: FDA-Public Use
  Company Number: None

PATIENT
  Age: 19 Year
  Sex: Male
  Weight: 76.6579 kg

DRUGS (1)
  1. SIMVASTATIN [Suspect]
     Dosage: 1 X 80 MG    ONCE    ORAL
     Route: 048
     Dates: start: 20041205, end: 20041205

REACTIONS (4)
  - BACK PAIN [None]
  - HYDROPNEUMOTHORAX [None]
  - RIB FRACTURE [None]
  - ROAD TRAFFIC ACCIDENT [None]
